FAERS Safety Report 15696604 (Version 1)
Quarter: 2018Q4

REPORT INFORMATION
  Report Type: Spontaneous
  Country: US (occurrence: US)
  Receive Date: 20181206
  Receipt Date: 20181206
  Transmission Date: 20190205
  Serious: Yes (Other)
  Sender: FDA-Public Use
  Company Number: US-SUPERNUS PHARMACEUTICALS, INC.-2018SUP00137

PATIENT
  Age: 27 Year
  Sex: Female
  Weight: 117.91 kg

DRUGS (8)
  1. OXTELLAR XR [Suspect]
     Active Substance: OXCARBAZEPINE
     Indication: SEIZURE
     Dosage: 600 MG, 2X/DAY
     Route: 048
     Dates: start: 201710, end: 20180329
  2. IRON [Concomitant]
     Active Substance: IRON
  3. LAMICTAL [Concomitant]
     Active Substance: LAMOTRIGINE
  4. UNSPECIFIED BIRTH CONTROL [Concomitant]
     Active Substance: UNSPECIFIED INGREDIENT
  5. STOOL SOFTENER (DOCUSATE) [Concomitant]
     Active Substance: DOCUSATE
  6. FOLIC ACID. [Concomitant]
     Active Substance: FOLIC ACID
  7. OXTELLAR XR [Suspect]
     Active Substance: OXCARBAZEPINE
     Indication: DYSKINESIA
  8. BIOTIN [Concomitant]
     Active Substance: BIOTIN

REACTIONS (4)
  - Seizure [Recovered/Resolved]
  - Product dose omission [Recovered/Resolved]
  - Inhibitory drug interaction [Unknown]
  - Weight increased [Recovering/Resolving]

NARRATIVE: CASE EVENT DATE: 201712
